FAERS Safety Report 8758656 (Version 1)
Quarter: 2012Q4

REPORT INFORMATION
  Report Type: Report from Study
  Country: US (occurrence: US)
  Receive Date: 20120829
  Receipt Date: 20120829
  Transmission Date: 20130627
  Serious: Yes (Hospitalization)
  Sender: FDA-Public Use
  Company Number: US-UCBSA-063985

PATIENT
  Age: 19 Year
  Sex: Female
  Weight: 41.2 kg

DRUGS (5)
  1. CIMZIA [Suspect]
     Indication: CROHN^S DISEASE
     Dosage: 400 MG/2ML SYRINGE KIT
     Route: 058
     Dates: start: 20111110, end: 20120404
  2. PENTASA [Concomitant]
     Indication: CROHN^S DISEASE
     Dosage: 250 MG DAW 4 CAPSULES
     Route: 048
     Dates: start: 200210
  3. PROCHLORPERAZINE MALEATE [Concomitant]
     Indication: NAUSEA
     Dosage: 10 MG 1 TABLET EVERY 6 HOURS PRN
     Route: 048
  4. AZATHIOPRINE [Concomitant]
     Indication: CROHN^S DISEASE
     Dosage: 50 MG 2 1/2 TABLET AT BED TIME
     Route: 048
     Dates: start: 200210
  5. AMBIEN [Concomitant]
     Indication: INSOMNIA
     Dosage: 1-2 TABLET AT BED TIME PRN
     Route: 048

REACTIONS (1)
  - Gastroenteritis [Recovered/Resolved]
